FAERS Safety Report 7719269-0 (Version None)
Quarter: 2011Q3

REPORT INFORMATION
  Report Type: 
  Country: None (occurrence: None)
  Receive Date: 20110830
  Receipt Date: 20110822
  Transmission Date: 20111222
  Serious: Yes (Hospitalization, Disabling, Other)
  Sender: FDA-Public Use
  Company Number: GB-TEVA-298144ISR

PATIENT
  Age: 43 Year
  Sex: Female

DRUGS (3)
  1. PHENYTOIN [Suspect]
     Indication: CONVULSION PROPHYLAXIS
     Route: 042
  2. PHENYTOIN [Suspect]
     Route: 042
  3. PHENYTOIN [Suspect]
     Route: 042

REACTIONS (1)
  - COGNITIVE DISORDER [None]
